FAERS Safety Report 5045070-5 (Version None)
Quarter: 2006Q2

REPORT INFORMATION
  Report Type: 
  Country: None (occurrence: None)
  Receive Date: 20060623
  Receipt Date: 20060615
  Transmission Date: 20061013
  Serious: Yes (Hospitalization)
  Sender: FDA-Public Use
  Company Number: THYM-10975

PATIENT
  Age: 65 Year
  Sex: Female
  Weight: 80.6 kg

DRUGS (3)
  1. THYMOGLOBULIN [Suspect]
     Indication: PROPHYLAXIS AGAINST TRANSPLANT REJECTION
     Dosage: 0.5 MG/KG ONCE IV
     Route: 042
     Dates: start: 20060509, end: 20060509
  2. THYMOGLOBULIN [Suspect]
     Indication: PROPHYLAXIS AGAINST TRANSPLANT REJECTION
     Dosage: 2.5 MG/KG ONCE IV
     Route: 042
     Dates: start: 20060510, end: 20060510
  3. THYMOGLOBULIN [Suspect]
     Indication: PROPHYLAXIS AGAINST TRANSPLANT REJECTION
     Dosage: 3 MG/KG ONCE IV
     Route: 042
     Dates: start: 20060511, end: 20060511

REACTIONS (4)
  - ANOREXIA [None]
  - GRAFT VERSUS HOST DISEASE IN INTESTINE [None]
  - NAUSEA [None]
  - STEM CELL TRANSPLANT [None]
